FAERS Safety Report 5248502-2 (Version None)
Quarter: 2007Q1

REPORT INFORMATION
  Report Type: 
  Country: None (occurrence: None)
  Receive Date: 20070227
  Receipt Date: 20070215
  Transmission Date: 20070707
  Serious: Yes (Other)
  Sender: FDA-Public Use
  Company Number: JP-PFIZER INC-2007009824

PATIENT

DRUGS (5)
  1. LIPITOR [Suspect]
     Route: 048
  2. NIVADIL [Suspect]
     Route: 048
  3. AMARYL [Concomitant]
  4. OMEPRAL [Concomitant]
  5. SALICYLIC ACID [Concomitant]

REACTIONS (1)
  - ANOSMIA [None]
